FAERS Safety Report 6802120-0 (Version None)
Quarter: 2010Q2

REPORT INFORMATION
  Report Type: 
  Country: None (occurrence: None)
  Receive Date: 20100629
  Receipt Date: 20080521
  Transmission Date: 20101027
  Serious: Yes (Hospitalization, Other)
  Sender: FDA-Public Use
  Company Number: US-PFIZER INC-2006106084

PATIENT
  Sex: Male
  Weight: 90.7 kg

DRUGS (4)
  1. BEXTRA [Suspect]
     Indication: ARTHRITIS
     Dates: end: 20041208
  2. VIOXX [Suspect]
  3. CELEBREX [Suspect]
     Indication: ARTHRITIS
     Dates: start: 20000601, end: 20000901
  4. CELEBREX [Suspect]
     Indication: PAIN

REACTIONS (2)
  - ANAEMIA [None]
  - GASTROINTESTINAL HAEMORRHAGE [None]
